FAERS Safety Report 7011271-X (Version None)
Quarter: 2010Q3

REPORT INFORMATION
  Report Type: 
  Country: None (occurrence: None)
  Receive Date: 20100922
  Receipt Date: 20100922
  Transmission Date: 20110219
  Serious: Yes (Other)
  Sender: FDA-Public Use
  Company Number: None

PATIENT
  Age: 11 Year
  Sex: Female
  Weight: 49.8957 kg

DRUGS (2)
  1. MOTRIN IB [Suspect]
     Indication: HEADACHE
     Dosage: 1 TABLET 1 EVERY 12 HRS PO
     Route: 048
     Dates: start: 20100829
  2. MOTRIN IB [Suspect]
     Indication: SKIN LACERATION
     Dosage: 1 TABLET 1 EVERY 12 HRS PO
     Route: 048
     Dates: start: 20100829

REACTIONS (5)
  - FEELING HOT [None]
  - LIP DISCOLOURATION [None]
  - LIP SWELLING [None]
  - SWELLING FACE [None]
  - URTICARIA [None]
